FAERS Safety Report 7721996-6 (Version None)
Quarter: 2011Q3

REPORT INFORMATION
  Report Type: 
  Country: None (occurrence: None)
  Receive Date: 20110831
  Receipt Date: 20110826
  Transmission Date: 20111222
  Serious: Yes (Other)
  Sender: FDA-Public Use
  Company Number: US-PFIZER INC-2011199667

PATIENT
  Sex: Female
  Weight: 61.224 kg

DRUGS (5)
  1. EFFEXOR [Suspect]
     Indication: DEPRESSION
     Dosage: 150 MG, 2X/DAY
     Route: 048
     Dates: start: 20021001
  2. EFFEXOR [Suspect]
     Dosage: 150 MG, 1X/DAY
     Route: 048
  3. KLONOPIN [Concomitant]
     Indication: INSOMNIA
     Dosage: UNK
  4. EFFEXOR [Suspect]
     Indication: ANXIETY
     Dosage: 150 MG, 3X/DAY
     Route: 048
  5. EFFEXOR [Suspect]
     Dosage: 150 MG UNKNOWN FREQUENCY

REACTIONS (5)
  - PRESYNCOPE [None]
  - FEELING ABNORMAL [None]
  - HYPERTENSION [None]
  - MALAISE [None]
  - CORONARY ARTERY OCCLUSION [None]
